FAERS Safety Report 6536795-0 (Version None)
Quarter: 2010Q1

REPORT INFORMATION
  Report Type: 
  Country: None (occurrence: None)
  Receive Date: 20100113
  Receipt Date: 20100108
  Transmission Date: 20100710
  Serious: Yes (Other)
  Sender: FDA-Public Use
  Company Number: JP-PFIZER INC-2010004312

PATIENT
  Age: 70 Year
  Sex: Male

DRUGS (4)
  1. GABAPEN [Suspect]
     Indication: EPILEPSY
     Dosage: UNK
     Route: 048
  2. GABAPEN [Suspect]
     Dosage: UNK
     Route: 048
  3. ALEVIATIN [Concomitant]
     Route: 048
  4. EXCELASE [Concomitant]
     Route: 048

REACTIONS (1)
  - DEPRESSED LEVEL OF CONSCIOUSNESS [None]
